FAERS Safety Report 7324087-1 (Version None)
Quarter: 2011Q1

REPORT INFORMATION
  Report Type: 
  Country: None (occurrence: None)
  Receive Date: 20110301
  Receipt Date: 20110218
  Transmission Date: 20110831
  Serious: No
  Sender: FDA-Public Use
  Company Number: US-ROXANE LABORATORIES, INC.-2011-RO-00212RO

PATIENT
  Sex: Male

DRUGS (3)
  1. ADVAIR DISKUS 100/50 [Concomitant]
     Indication: ASTHMA
     Route: 055
  2. ALLEGRA [Concomitant]
     Indication: SEASONAL ALLERGY
  3. FLUTICASONE PROPIONATE [Suspect]
     Indication: SEASONAL ALLERGY
     Route: 055
     Dates: end: 20101201

REACTIONS (2)
  - NASAL DISCOMFORT [None]
  - EPISTAXIS [None]
